FAERS Safety Report 21747825 (Version 1)
Quarter: 2022Q4

REPORT INFORMATION
  Report Type: Spontaneous
  Country: US (occurrence: None)
  Receive Date: 20221216
  Receipt Date: 20221216
  Transmission Date: 20230113
  Serious: Yes (Hospitalization)
  Sender: FDA-Public Use
  Company Number: None

PATIENT
  Age: 78 Year
  Sex: Male
  Weight: 97.65 kg

DRUGS (15)
  1. CLENPIQ [Suspect]
     Active Substance: ANHYDROUS CITRIC ACID\MAGNESIUM OXIDE\SODIUM PICOSULFATE
     Indication: Colonoscopy
     Dates: start: 20221213, end: 20221213
  2. ALLOPURINOL [Concomitant]
     Active Substance: ALLOPURINOL
  3. PANTOPRAZOLE [Concomitant]
     Active Substance: PANTOPRAZOLE
  4. ROSUVASTATIN CALCIUM [Concomitant]
     Active Substance: ROSUVASTATIN CALCIUM
  5. CLOPIDOGREL [Concomitant]
     Active Substance: CLOPIDOGREL BISULFATE
  6. OLMESARTAN MEDOXOMIL [Concomitant]
     Active Substance: OLMESARTAN MEDOXOMIL
  7. CITALOPRAM [Concomitant]
     Active Substance: CITALOPRAM HYDROBROMIDE
  8. ALPRAZOLAM [Concomitant]
     Active Substance: ALPRAZOLAM
  9. Aspirina 81 [Concomitant]
  10. Hydrolazine [Concomitant]
  11. VITAMINS [Concomitant]
     Active Substance: VITAMINS
  12. GLUCOSAMINE [Concomitant]
     Active Substance: GLUCOSAMINE
  13. Vitamina C Calcio con vitamina B [Concomitant]
  14. MINERALS\VITAMINS [Concomitant]
     Active Substance: MINERALS\VITAMINS
  15. VITEYES [Concomitant]

REACTIONS (3)
  - Headache [None]
  - Nausea [None]
  - Blood pressure increased [None]

NARRATIVE: CASE EVENT DATE: 20221214
